FAERS Safety Report 13419024 (Version 2)
Quarter: 2017Q4

REPORT INFORMATION
  Report Type: Spontaneous
  Country: US (occurrence: US)
  Receive Date: 20170407
  Receipt Date: 20171123
  Transmission Date: 20180320
  Serious: Yes (Death)
  Sender: FDA-Public Use
  Company Number: US-JNJFOC-20170319112

PATIENT
  Sex: Male

DRUGS (2)
  1. RISPERDAL [Suspect]
     Active Substance: RISPERIDONE
     Indication: CONDUCT DISORDER
     Dosage: VARIOUS DOSES OF 0.25 MG, 0.5 MG, 1 MG AND 2 MG WITH VARIOUS FREQUENCIES
     Route: 048
     Dates: start: 20031121, end: 20071213
  2. RISPERDAL [Suspect]
     Active Substance: RISPERIDONE
     Indication: AFFECTIVE DISORDER
     Dosage: VARIOUS DOSES OF 0.25 MG, 0.5 MG, 1 MG AND 2 MG WITH VARIOUS FREQUENCIES
     Route: 048
     Dates: start: 20031121, end: 20071213

REACTIONS (2)
  - Gynaecomastia [Unknown]
  - Emotional disorder [Unknown]
